FAERS Safety Report 7874907-7 (Version None)
Quarter: 2011Q4

REPORT INFORMATION
  Report Type: 
  Country: None (occurrence: None)
  Receive Date: 20111031
  Receipt Date: 20111020
  Transmission Date: 20120403
  Serious: Yes (Hospitalization)
  Sender: FDA-Public Use
  Company Number: FR-JNJFOC-20111010244

PATIENT
  Age: 13 Year
  Sex: Male

DRUGS (2)
  1. REMICADE [Suspect]
     Route: 042
     Dates: start: 20110211
  2. REMICADE [Suspect]
     Indication: INFLAMMATORY BOWEL DISEASE
     Route: 042
     Dates: start: 20110728, end: 20110728

REACTIONS (4)
  - RESPIRATORY DISORDER [None]
  - OXYGEN SATURATION DECREASED [None]
  - OROPHARYNGEAL DISCOMFORT [None]
  - INFUSION RELATED REACTION [None]
